FAERS Safety Report 5771537-8 (Version None)
Quarter: 2008Q2

REPORT INFORMATION
  Report Type: 
  Country: None (occurrence: None)
  Receive Date: 20080613
  Receipt Date: 20080530
  Transmission Date: 20081010
  Serious: Yes (Other)
  Sender: FDA-Public Use
  Company Number: PHEH2008US05294

PATIENT
  Sex: Female

DRUGS (3)
  1. FEMARA [Suspect]
  2. CLOMID [Suspect]
     Dosage: 50 MG, UNK
     Dates: start: 20061001, end: 20061201
  3. CLOMID [Suspect]
     Dosage: 150 MG, UNK
     Dates: start: 20061201

REACTIONS (3)
  - ABORTION SPONTANEOUS [None]
  - DRUG EXPOSURE BEFORE PREGNANCY [None]
  - UTERINE DILATION AND CURETTAGE [None]
